FAERS Safety Report 22314370 (Version 2)
Quarter: 2023Q2

REPORT INFORMATION
  Report Type: Spontaneous
  Country: GB (occurrence: GB)
  Receive Date: 20230512
  Receipt Date: 20230605
  Transmission Date: 20230722
  Serious: Yes (Death, Life-Threatening, Hospitalization, Other)
  Sender: FDA-Public Use
  Company Number: GB-MHRA-MED-202305091625404300-ZMDGS

PATIENT
  Age: 35 Year
  Sex: Male

DRUGS (1)
  1. AXICABTAGENE CILOLEUCEL [Suspect]
     Active Substance: AXICABTAGENE CILOLEUCEL
     Indication: Diffuse large B-cell lymphoma
     Dosage: UNK
     Route: 065
     Dates: start: 20230227, end: 20230227

REACTIONS (4)
  - Haemophagocytic lymphohistiocytosis [Fatal]
  - Sputum discoloured [Unknown]
  - Productive cough [Unknown]
  - Cytokine release syndrome [Recovered/Resolved]
